FAERS Safety Report 6795822-6 (Version None)
Quarter: 2010Q2

REPORT INFORMATION
  Report Type: 
  Country: None (occurrence: None)
  Receive Date: 20100625
  Receipt Date: 20100617
  Transmission Date: 20101027
  Serious: Yes (Other)
  Sender: FDA-Public Use
  Company Number: A0851005A

PATIENT
  Sex: Female

DRUGS (4)
  1. TYKERB [Suspect]
     Dosage: 1250MG PER DAY
     Route: 048
     Dates: start: 20100311
  2. ELTROXIN [Concomitant]
     Indication: THYROID DISORDER
     Route: 065
  3. XELODA [Concomitant]
     Route: 065
  4. LOSEC I.V. [Concomitant]
     Route: 065

REACTIONS (9)
  - ARTHRALGIA [None]
  - BACK PAIN [None]
  - BREAST CANCER METASTATIC [None]
  - DIARRHOEA [None]
  - DRY SKIN [None]
  - HEADACHE [None]
  - NAIL DISORDER [None]
  - PAIN IN EXTREMITY [None]
  - SKIN IRRITATION [None]
